FAERS Safety Report 11869362 (Version 1)
Quarter: 2015Q4

REPORT INFORMATION
  Report Type: Spontaneous
  Country: US (occurrence: US)
  Receive Date: 20151226
  Receipt Date: 20151226
  Transmission Date: 20160305
  Serious: Yes (Hospitalization, Other)
  Sender: FDA-Public Use
  Company Number: US-GUERBET LLC-1045899

PATIENT
  Age: 67 Year
  Sex: Male

DRUGS (2)
  1. OXILAN [Suspect]
     Active Substance: IOXILAN
     Dates: start: 20140310, end: 20140310
  2. LIPIODOL ULTRA-FLUIDE [Concomitant]
     Active Substance: ETHIODIZED OIL
     Dates: start: 20140310, end: 20140310

REACTIONS (1)
  - Acute kidney injury [Not Recovered/Not Resolved]

NARRATIVE: CASE EVENT DATE: 20140312
